FAERS Safety Report 10101717 (Version 5)
Quarter: 2015Q2

REPORT INFORMATION
  Report Type: Spontaneous
  Country: US (occurrence: US)
  Receive Date: 20140424
  Receipt Date: 20150403
  Transmission Date: 20150821
  Serious: Yes (Hospitalization, Other)
  Sender: FDA-Public Use
  Company Number: US-PFIZER INC-2014113472

PATIENT
  Age: 56 Year
  Sex: Male
  Weight: 104 kg

DRUGS (12)
  1. PRAVASTATIN [Concomitant]
     Active Substance: PRAVASTATIN\PRAVASTATIN SODIUM
     Indication: BLOOD CHOLESTEROL ABNORMAL
     Dosage: 80 MG, 1X/DAY
     Route: 048
     Dates: start: 2010
  2. LYRICA [Suspect]
     Active Substance: PREGABALIN
     Indication: PAIN
  3. LISINOPRIL. [Concomitant]
     Active Substance: LISINOPRIL
     Indication: BLOOD PRESSURE ABNORMAL
  4. LANTUS [Concomitant]
     Active Substance: INSULIN GLARGINE
     Indication: DIABETES MELLITUS
     Dosage: 36 IU, 1X/DAY
     Dates: start: 2014
  5. LYRICA [Suspect]
     Active Substance: PREGABALIN
     Indication: PAIN IN EXTREMITY
  6. CLONIDINE. [Concomitant]
     Active Substance: CLONIDINE
     Indication: BLOOD PRESSURE ABNORMAL
     Dosage: 0.1 MG, 2X/DAY
     Route: 048
     Dates: start: 2014, end: 2015
  7. HUMULIN 70/30 [Concomitant]
     Active Substance: INSULIN HUMAN
     Indication: DIABETES MELLITUS
     Dosage: 110 IU, DAILY
     Dates: start: 2010, end: 2014
  8. CARVEDILOL. [Concomitant]
     Active Substance: CARVEDILOL
     Indication: CARDIAC DISORDER
     Dosage: 25 MG, 2X/DAY
     Route: 048
     Dates: start: 2012
  9. LYRICA [Suspect]
     Active Substance: PREGABALIN
     Indication: PAIN
     Dosage: 150 MG, 2X/DAY
     Route: 048
     Dates: start: 2013
  10. NOVOLOG [Concomitant]
     Active Substance: INSULIN ASPART
     Indication: DIABETES MELLITUS
     Dosage: 25 IU, 3X/DAY
     Dates: start: 2014
  11. METFORMIN [Concomitant]
     Active Substance: METFORMIN HYDROCHLORIDE
     Indication: DIABETES MELLITUS
     Dosage: 2500 MG, DAILY
     Dates: start: 2010
  12. LISINOPRIL. [Concomitant]
     Active Substance: LISINOPRIL
     Indication: HYPERTENSION
     Dosage: 40 MG, 1X/DAY
     Route: 048
     Dates: start: 2010

REACTIONS (4)
  - Gangrene [Not Recovered/Not Resolved]
  - Drug ineffective [Unknown]
  - Pain in extremity [Not Recovered/Not Resolved]
  - Therapeutic response unexpected [Unknown]

NARRATIVE: CASE EVENT DATE: 20140409
